FAERS Safety Report 20991971 (Version 1)
Quarter: 2022Q2

REPORT INFORMATION
  Report Type: Spontaneous
  Country: US (occurrence: US)
  Receive Date: 20220622
  Receipt Date: 20220622
  Transmission Date: 20220720
  Serious: Yes (Other)
  Sender: FDA-Public Use
  Company Number: US-INDIVIOR EUROPE LIMITED-INDV-134633-2022

PATIENT

DRUGS (1)
  1. SUBOXONE [Suspect]
     Active Substance: BUPRENORPHINE HYDROCHLORIDE\NALOXONE HYDROCHLORIDE
     Indication: Drug dependence
     Dosage: 8 MILLIGRAM, BID (TAKES HALF OR QUARTER FILM)
     Route: 060

REACTIONS (5)
  - Pancreatitis relapsing [Unknown]
  - Inappropriate schedule of product discontinuation [Unknown]
  - Headache [Unknown]
  - Hot flush [Not Recovered/Not Resolved]
  - Wrong technique in product usage process [Unknown]
